FAERS Safety Report 22119819 (Version 1)
Quarter: 2023Q1

REPORT INFORMATION
  Report Type: Spontaneous
  Country: GB (occurrence: GB)
  Receive Date: 20230321
  Receipt Date: 20230321
  Transmission Date: 20230418
  Serious: Yes (Other)
  Sender: FDA-Public Use
  Company Number: GB-MHRA-MED-202303141009389170-VSPYN

PATIENT
  Age: 48 Year
  Sex: Male
  Weight: 119 kg

DRUGS (1)
  1. BUDESONIDE [Suspect]
     Active Substance: BUDESONIDE
     Indication: Asthma
     Dosage: 2 PUFFS DAILY; ;
     Route: 065

REACTIONS (6)
  - Migraine [Recovered/Resolved]
  - Oral candidiasis [Recovered/Resolved]
  - Product use in unapproved indication [Recovered/Resolved]
  - Oropharyngeal pain [Recovered/Resolved]
  - Visual impairment [Recovered/Resolved]
  - Therapeutic response unexpected [Unknown]
